FAERS Safety Report 25443963 (Version 1)
Quarter: 2025Q2

REPORT INFORMATION
  Report Type: Spontaneous
  Country: US (occurrence: US)
  Receive Date: 20250617
  Receipt Date: 20250617
  Transmission Date: 20250717
  Serious: No
  Sender: ROCHE
  Company Number: US-ROCHE-10000311334

PATIENT
  Sex: Male

DRUGS (2)
  1. XOLAIR PFS [Suspect]
     Active Substance: OMALIZUMAB
     Indication: Nasal polyps
     Dosage: STRENGHT: 150 MG/ML
     Route: 058
     Dates: start: 202506
  2. XOLAIR PFS [Suspect]
     Active Substance: OMALIZUMAB
     Indication: Nasal polyps
     Dosage: STRENGHT: 75/0.5 MG/ML
     Route: 058
     Dates: start: 202506

REACTIONS (1)
  - Haemorrhage [Unknown]
